FAERS Safety Report 9562506 (Version 1)
Quarter: 2013Q3

REPORT INFORMATION
  Report Type: Spontaneous
  Country: US (occurrence: US)
  Receive Date: 20130927
  Receipt Date: 20130927
  Transmission Date: 20140515
  Serious: Yes (Hospitalization, Other)
  Sender: FDA-Public Use
  Company Number: US-SANOFI-AVENTIS-2013SA094705

PATIENT
  Age: 57 Year
  Sex: Female

DRUGS (2)
  1. FABRAZYME [Suspect]
     Indication: FABRY^S DISEASE
     Route: 042
     Dates: start: 20050203
  2. FABRAZYME [Suspect]
     Indication: FABRY^S DISEASE
     Route: 042
     Dates: start: 201305

REACTIONS (2)
  - Staphylococcal infection [Unknown]
  - Myocardial infarction [Unknown]
